FAERS Safety Report 8866342 (Version 4)
Quarter: 2012Q4

REPORT INFORMATION
  Report Type: Report from Study
  Country: US (occurrence: US)
  Receive Date: 20121025
  Receipt Date: 20121226
  Transmission Date: 20130627
  Serious: Yes (Other)
  Sender: FDA-Public Use
  Company Number: US-ROCHE-1146278

PATIENT
  Age: 62 Year
  Sex: Male

DRUGS (9)
  1. RIBAVIRIN [Suspect]
     Indication: CHRONIC HEPATITIS C
     Route: 065
     Dates: start: 20120712, end: 20120801
  2. BMS-986094 [Suspect]
     Indication: CHRONIC HEPATITIS C
     Route: 065
     Dates: start: 20120712, end: 20120801
  3. TETRAHYDROCANNABINOL [Concomitant]
     Route: 065
     Dates: start: 19990101
  4. METFORMIN [Concomitant]
     Route: 065
     Dates: start: 20030101
  5. LISINOPRIL [Concomitant]
     Route: 065
     Dates: start: 20030101
  6. ASPIRIN [Concomitant]
     Route: 065
     Dates: start: 20030101
  7. GLIPIZIDE [Concomitant]
     Route: 065
     Dates: start: 20030101
  8. VARDENAFIL [Concomitant]
     Route: 065
     Dates: start: 20090101
  9. VICODIN [Concomitant]
     Route: 065
     Dates: start: 20110701

REACTIONS (4)
  - Renal failure acute [Recovered/Resolved]
  - Ventricular hypokinesia [Recovered/Resolved]
  - Blood creatinine increased [Recovered/Resolved]
  - Left ventricular dysfunction [Recovered/Resolved]
